FAERS Safety Report 11249966 (Version 1)
Quarter: 2015Q3

REPORT INFORMATION
  Report Type: Spontaneous
  Country: US (occurrence: US)
  Receive Date: 20150708
  Receipt Date: 20150708
  Transmission Date: 20151125
  Serious: No
  Sender: FDA-Public Use
  Company Number: US-ELI_LILLY_AND_COMPANY-US201004003897

PATIENT
  Sex: Male

DRUGS (2)
  1. SYMBYAX [Suspect]
     Active Substance: FLUOXETINE HYDROCHLORIDE\OLANZAPINE
     Indication: PSYCHOTIC DISORDER
     Dosage: 1 D/F, DAILY (1/D)
  2. SYMBYAX [Suspect]
     Active Substance: FLUOXETINE HYDROCHLORIDE\OLANZAPINE
     Dosage: 1 D/F, DAILY (1/D)

REACTIONS (3)
  - Agitation [Not Recovered/Not Resolved]
  - Tremor [Unknown]
  - Off label use [Not Recovered/Not Resolved]
